FAERS Safety Report 19502670 (Version 1)
Quarter: 2021Q3

REPORT INFORMATION
  Report Type: Spontaneous
  Country: DE (occurrence: DE)
  Receive Date: 20210707
  Receipt Date: 20210707
  Transmission Date: 20211014
  Serious: Yes (Hospitalization, Other)
  Sender: FDA-Public Use
  Company Number: DE-TEVA-2021-DE-1930316

PATIENT
  Age: 23 Year
  Sex: Male

DRUGS (1)
  1. LORAZEPAM. [Suspect]
     Active Substance: LORAZEPAM
     Dosage: 1 MG, EVEN TOOK UP TO 5MG DAILY
     Route: 048

REACTIONS (2)
  - Seizure [Unknown]
  - Drug withdrawal convulsions [Unknown]
